FAERS Safety Report 17733957 (Version 1)
Quarter: 2020Q2

REPORT INFORMATION
  Report Type: Spontaneous
  Country: US (occurrence: US)
  Receive Date: 20200501
  Receipt Date: 20200501
  Transmission Date: 20200714
  Serious: No
  Sender: FDA-Public Use
  Company Number: None

PATIENT
  Age: 27 Year
  Sex: Female
  Weight: 58.5 kg

DRUGS (14)
  1. AMITRIPTYLENE [Concomitant]
     Active Substance: AMITRIPTYLINE
  2. VITAMIN C [Concomitant]
     Active Substance: ASCORBIC ACID
  3. LANTUS [Concomitant]
     Active Substance: INSULIN GLARGINE
  4. AFREZZA [Concomitant]
     Active Substance: INSULIN HUMAN
  5. MESALAMINE TABLETS [Concomitant]
  6. MULTIVITAMIN [Concomitant]
     Active Substance: VITAMINS
  7. FIASP [Suspect]
     Active Substance: INSULIN ASPART
     Indication: TYPE 1 DIABETES MELLITUS
     Dosage: ?          OTHER STRENGTH:UNITS/ML;QUANTITY:30 UNITS;?
     Route: 058
     Dates: start: 20181201, end: 20191201
  8. MICROGESTIN FE [Concomitant]
     Active Substance: ETHINYL ESTRADIOL\FERROUS FUMARATE\NORETHINDRONE ACETATE
  9. MESALAMINE SUPPOSITORY [Concomitant]
  10. FLUTICASONE. [Concomitant]
     Active Substance: FLUTICASONE
  11. FEXOFENADINE HCI [Concomitant]
  12. HUMALOG [Concomitant]
     Active Substance: INSULIN LISPRO
  13. ALPHA LIPOIC ACID [Concomitant]
     Active Substance: .ALPHA.-LIPOIC ACID
  14. LEVOTHYROXINE. [Concomitant]
     Active Substance: LEVOTHYROXINE

REACTIONS (3)
  - Injection site erythema [None]
  - Injection site pruritus [None]
  - Injection site swelling [None]

NARRATIVE: CASE EVENT DATE: 20191201
